FAERS Safety Report 15947232 (Version 1)
Quarter: 2019Q1

REPORT INFORMATION
  Report Type: Spontaneous
  Country: US (occurrence: US)
  Receive Date: 20190211
  Receipt Date: 20190211
  Transmission Date: 20190417
  Serious: No
  Sender: FDA-Public Use
  Company Number: US-PFIZER INC-2019060584

PATIENT
  Age: 50 Year
  Sex: Female

DRUGS (1)
  1. GENOTROPIN [Suspect]
     Active Substance: SOMATROPIN
     Indication: CUSHING^S SYNDROME
     Dosage: 0.4 MG, DAILY

REACTIONS (7)
  - Blood triglycerides increased [Unknown]
  - Product use in unapproved indication [Unknown]
  - Blood thyroid stimulating hormone decreased [Unknown]
  - Blood corticotrophin decreased [Unknown]
  - Low density lipoprotein increased [Unknown]
  - Blood prolactin decreased [Unknown]
  - Blood cholesterol increased [Unknown]
